FAERS Safety Report 10330654 (Version 2)
Quarter: 2014Q3

REPORT INFORMATION
  Report Type: Spontaneous
  Country: PL (occurrence: PL)
  Receive Date: 20140722
  Receipt Date: 20140722
  Transmission Date: 20150326
  Serious: Yes (Other)
  Sender: FDA-Public Use
  Company Number: PHHY2014PL069198

PATIENT
  Age: 21 Year
  Sex: Female
  Weight: 57 kg

DRUGS (1)
  1. GILENYA [Suspect]
     Active Substance: FINGOLIMOD HYDROCHLORIDE
     Indication: MULTIPLE SCLEROSIS
     Dosage: UNK
     Route: 048
     Dates: start: 201403, end: 201404

REACTIONS (10)
  - Flushing [Unknown]
  - Dermatitis allergic [Recovering/Resolving]
  - Cough [Recovering/Resolving]
  - Rash papular [Recovering/Resolving]
  - Pruritus [Recovering/Resolving]
  - Hypersensitivity [Unknown]
  - Erythema [Unknown]
  - Skin lesion [Recovering/Resolving]
  - Nocturnal dyspnoea [Recovered/Resolved]
  - Respiratory disorder [Not Recovered/Not Resolved]

NARRATIVE: CASE EVENT DATE: 201404
